FAERS Safety Report 13269000 (Version 1)
Quarter: 2017Q1

REPORT INFORMATION
  Report Type: Spontaneous
  Country: US (occurrence: US)
  Receive Date: 20170224
  Receipt Date: 20170224
  Transmission Date: 20170428
  Serious: Yes (Other)
  Sender: FDA-Public Use
  Company Number: US-LPDUSPRD-20170180

PATIENT
  Age: 76 Year
  Sex: Female

DRUGS (2)
  1. BUPIVACAINE. [Suspect]
     Active Substance: BUPIVACAINE
     Dosage: 0.5%, 15 ML
     Route: 051
  2. EPINEPHRINE INJECTION, USP (1130-05) [Suspect]
     Active Substance: EPINEPHRINE
     Dosage: 15ML
     Route: 051

REACTIONS (3)
  - Ischaemia [Unknown]
  - Nerve injury [Unknown]
  - Neurotoxicity [Unknown]
